FAERS Safety Report 5167460-2 (Version None)
Quarter: 2006Q4

REPORT INFORMATION
  Report Type: 
  Country: None (occurrence: None)
  Receive Date: 20061130
  Receipt Date: 20061116
  Transmission Date: 20070319
  Serious: Yes (Hospitalization)
  Sender: FDA-Public Use
  Company Number: 2006SP006790

PATIENT
  Age: 52 Year
  Sex: Male

DRUGS (3)
  1. TEMODAL [Suspect]
     Indication: GLIOBLASTOMA
     Dosage: 75 + 200 MG/M2/ QD/PO - SEE IMAGE
     Route: 048
     Dates: start: 20060828
  2. TEMODAL [Suspect]
     Indication: GLIOBLASTOMA
     Dosage: 75 + 200 MG/M2/ QD/PO - SEE IMAGE
     Route: 048
     Dates: start: 20060925
  3. RADIOTHERAPY (CON.) [Concomitant]

REACTIONS (3)
  - HAEMOGLOBIN DECREASED [None]
  - PLATELET COUNT DECREASED [None]
  - PNEUMONIA BACTERIAL [None]
